FAERS Safety Report 8308699-4 (Version None)
Quarter: 2012Q1

REPORT INFORMATION
  Report Type: 
  Country: None (occurrence: None)
  Receive Date: 20120327
  Receipt Date: 20110429
  Transmission Date: 20120608
  Serious: Yes (Disabling, Other)
  Sender: FDA-Public Use
  Company Number: PHHY2011US11360

PATIENT
  Age: 42 Year
  Sex: Male
  Weight: 103 kg

DRUGS (3)
  1. GLEEVEC [Suspect]
     Indication: CHRONIC MYELOID LEUKAEMIA
     Dosage: 400 MG, DAILY, ORAL
     Route: 048
     Dates: start: 20091019, end: 20110310
  2. HYDROCHLOROTHIAZIDE [Concomitant]
  3. LASIX [Concomitant]

REACTIONS (11)
  - MALAISE [None]
  - SINUSITIS [None]
  - HEADACHE [None]
  - PNEUMONIA [None]
  - VISION BLURRED [None]
  - HYPERTENSION [None]
  - PYREXIA [None]
  - PAIN [None]
  - INFLUENZA [None]
  - COUGH [None]
  - LIBIDO DECREASED [None]
